FAERS Safety Report 6083594-2 (Version None)
Quarter: 2009Q1

REPORT INFORMATION
  Report Type: 
  Country: None (occurrence: None)
  Receive Date: 20090219
  Receipt Date: 20090217
  Transmission Date: 20090719
  Serious: Yes (Hospitalization)
  Sender: FDA-Public Use
  Company Number: PHEH2008US09802

PATIENT
  Sex: Female
  Weight: 53.152 kg

DRUGS (12)
  1. EXFORGE [Suspect]
     Indication: HYPERTENSION
     Dosage: 10/320MG DAILY
     Route: 048
     Dates: start: 20080529, end: 20081014
  2. LOPRESSOR [Concomitant]
  3. PLAVIX [Concomitant]
     Dosage: 75MG DAILY
     Dates: start: 20080101
  4. MAXZIDE [Concomitant]
  5. ASPIRIN [Concomitant]
     Dosage: 81MG DAILY
  6. LISINOPRIL [Concomitant]
     Dosage: 10MG DAILY
  7. AMLODIPINE [Concomitant]
     Dosage: 5MG TWICE DAILY
  8. NITROGLYCERIN [Concomitant]
     Indication: CHEST PAIN
     Dosage: 0.4MG AS NEEDED
     Route: 060
  9. METOPROLOL TARTRATE [Concomitant]
     Dosage: 25MG DAILY
  10. LASIX [Concomitant]
     Indication: OEDEMA
     Dosage: UNK
  11. LOTREL [Concomitant]
  12. TRIAMTERENE AND HYDROCHLOROTHIAZID ^HARRIS^ [Concomitant]

REACTIONS (15)
  - BLOOD CREATINE PHOSPHOKINASE INCREASED [None]
  - BLOOD CREATINE PHOSPHOKINASE MB INCREASED [None]
  - CATHETERISATION CARDIAC [None]
  - CHEST PAIN [None]
  - CORONARY ARTERIAL STENT INSERTION [None]
  - CORONARY ARTERY DISEASE [None]
  - CORONARY ARTERY STENOSIS [None]
  - HYPERTENSION [None]
  - JOINT SWELLING [None]
  - MUSCULAR WEAKNESS [None]
  - MYALGIA [None]
  - MYOCARDIAL INFARCTION [None]
  - OEDEMA PERIPHERAL [None]
  - RHABDOMYOLYSIS [None]
  - TROPONIN I INCREASED [None]
